FAERS Safety Report 23103720 (Version 1)
Quarter: 2023Q4

REPORT INFORMATION
  Report Type: Spontaneous
  Country: US (occurrence: None)
  Receive Date: 20231024
  Receipt Date: 20231024
  Transmission Date: 20240109
  Serious: Yes (unspecified)
  Sender: FDA-Public Use
  Company Number: None

PATIENT
  Age: 46 Year
  Sex: Male
  Weight: 85.28 kg

DRUGS (5)
  1. CARBOHYDRATES\ELECTROLYTES NOS [Suspect]
     Active Substance: CARBOHYDRATES\ELECTROLYTES NOS
     Indication: Electrolyte imbalance
     Dosage: OTHER QUANTITY : 12 OUNCE(S);?OTHER FREQUENCY : AS DESIRED;?OTHER ROUTE : ORAL INGESTION;?
     Route: 050
     Dates: start: 20231004, end: 20231008
  2. CARBOHYDRATES\ELECTROLYTES NOS [Suspect]
     Active Substance: CARBOHYDRATES\ELECTROLYTES NOS
     Indication: Fluid replacement
  3. AUGMENTIN [Concomitant]
     Active Substance: AMOXICILLIN\CLAVULANATE POTASSIUM
  4. Nature brand Vitamin-D [Concomitant]
  5. TUMS [Concomitant]
     Active Substance: CALCIUM CARBONATE

REACTIONS (6)
  - Food interaction [None]
  - Drug interaction [None]
  - Dyspepsia [None]
  - Gastrointestinal pain [None]
  - Gastric pH decreased [None]
  - Reaction to colouring [None]

NARRATIVE: CASE EVENT DATE: 20231004
